FAERS Safety Report 16037704 (Version 4)
Quarter: 2020Q2

REPORT INFORMATION
  Report Type: Spontaneous
  Country: US (occurrence: US)
  Receive Date: 20190305
  Receipt Date: 20200629
  Transmission Date: 20200713
  Serious: Yes (Other)
  Sender: FDA-Public Use
  Company Number: US-IMPAX LABORATORIES, LLC-2018-IPXL-04498

PATIENT
  Age: 66 Year
  Sex: Female
  Weight: 63 kg

DRUGS (6)
  1. GOCOVRI [Interacting]
     Active Substance: AMANTADINE
     Indication: DYSKINESIA
     Dosage: 68.5 MILLIGRAM, 1 /DAY (AT BEDTIME)
     Route: 048
     Dates: start: 20191120, end: 20191122
  2. DULOXETINE. [Concomitant]
     Active Substance: DULOXETINE
     Indication: DEPRESSION
     Dosage: 30 MILLIGRAM, DAILY
     Route: 065
  3. RYTARY [Suspect]
     Active Substance: CARBIDOPA\LEVODOPA
     Indication: PARKINSON^S DISEASE
     Dosage: UNK
     Route: 065
     Dates: start: 2016
  4. LEVOTHYROXINE. [Concomitant]
     Active Substance: LEVOTHYROXINE
     Indication: THYROID THERAPY
     Dosage: 25 MILLIGRAM, DAILY
     Route: 065
  5. RYTARY [Interacting]
     Active Substance: CARBIDOPA\LEVODOPA
     Dosage: 61.25MG/245MG, 1 CAPSULES, TID
     Route: 065
  6. RYTARY [Interacting]
     Active Substance: CARBIDOPA\LEVODOPA
     Dosage: 61.25MG/245MG, 5 /DAY
     Route: 065

REACTIONS (8)
  - Condition aggravated [Unknown]
  - Abdominal discomfort [Unknown]
  - Feeling abnormal [Not Recovered/Not Resolved]
  - Drug interaction [Unknown]
  - Malaise [Unknown]
  - Sciatica [Unknown]
  - Dyskinesia [Not Recovered/Not Resolved]
  - Arthropathy [Unknown]

NARRATIVE: CASE EVENT DATE: 201803
